FAERS Safety Report 5638489-2 (Version None)
Quarter: 2008Q1

REPORT INFORMATION
  Report Type: 
  Country: None (occurrence: None)
  Receive Date: 20080226
  Receipt Date: 20070221
  Transmission Date: 20080703
  Serious: No
  Sender: FDA-Public Use
  Company Number: A0636391A

PATIENT
  Age: 51 Year
  Sex: Male
  Weight: 100 kg

DRUGS (5)
  1. IMITREX [Suspect]
     Indication: MIGRAINE
     Route: 065
  2. GLUCOPHAGE [Concomitant]
     Dosage: 1000MG TWICE PER DAY
     Route: 048
  3. VYTORIN [Concomitant]
     Dosage: 10MG PER DAY
     Route: 048
  4. PREVACID [Concomitant]
     Dosage: 30MG PER DAY
     Route: 048
  5. CYMBALTA [Concomitant]
     Dosage: 60MG AS REQUIRED
     Route: 048

REACTIONS (4)
  - ARTHRALGIA [None]
  - ARTHRITIS [None]
  - CARTILAGE INJURY [None]
  - JOINT STIFFNESS [None]
